FAERS Safety Report 4474022-9 (Version None)
Quarter: 2004Q4

REPORT INFORMATION
  Report Type: 
  Country: None (occurrence: None)
  Receive Date: 20041008
  Receipt Date: 20041001
  Transmission Date: 20050328
  Serious: Yes (Death)
  Sender: FDA-Public Use
  Company Number: 163-20785-04090155

PATIENT
  Age: 77 Year
  Sex: Female

DRUGS (1)
  1. THALOMID [Suspect]
     Indication: MULTIPLE MYELOMA
     Dosage: 200 MG DAILY ORAL
     Route: 048
     Dates: start: 20031001, end: 20040901

REACTIONS (6)
  - BONE DISORDER [None]
  - DISEASE PROGRESSION [None]
  - HIP FRACTURE [None]
  - MULTIPLE MYELOMA [None]
  - PULMONARY MASS [None]
  - RESPIRATORY FAILURE [None]
